FAERS Safety Report 21489700 (Version 2)
Quarter: 2022Q4

REPORT INFORMATION
  Report Type: Spontaneous
  Country: RU (occurrence: RU)
  Receive Date: 20221021
  Receipt Date: 20221116
  Transmission Date: 20230113
  Serious: Yes (Hospitalization, Other)
  Sender: FDA-Public Use
  Company Number: RU-SUN PHARMACEUTICAL INDUSTRIES LTD-2022R1-359300

PATIENT
  Age: 30 Year
  Sex: Male
  Weight: 86 kg

DRUGS (1)
  1. SOTRET [Suspect]
     Active Substance: ISOTRETINOIN
     Indication: Product used for unknown indication
     Dosage: DAILY DOSE - 50 MG/KG, SINGLE DOSE - 20MG/KG AND 30 MG/KG
     Route: 065
     Dates: start: 20220124, end: 20220809

REACTIONS (1)
  - Granulomatosis with polyangiitis [Recovering/Resolving]

NARRATIVE: CASE EVENT DATE: 20220505
